FAERS Safety Report 5062491-5 (Version None)
Quarter: 2006Q3

REPORT INFORMATION
  Report Type: 
  Country: None (occurrence: None)
  Receive Date: 20060721
  Receipt Date: 20060630
  Transmission Date: 20061208
  Serious: Yes (Hospitalization)
  Sender: FDA-Public Use
  Company Number: 2006RR-02895

PATIENT
  Age: 59 Year
  Sex: Female

DRUGS (11)
  1. SIMVASTATIN [Suspect]
     Indication: HYPERLIPIDAEMIA
     Dosage: 20 MG, QD, ORAL
     Route: 048
  2. PRAVASTATIN [Concomitant]
  3. CYCLOSPORINE, 125 MG [Concomitant]
  4. MYCOPHENOLATE MOFEITIL [Concomitant]
  5. PREDNISONE [Concomitant]
  6. ASPIRIN [Concomitant]
  7. METOPROLOL TARTRATE [Concomitant]
  8. NITRENDIPINE [Concomitant]
  9. ALLOPURINOL ORAL FAMILY (ALLOPURINOL) TABLET [Concomitant]
  10. LOSARTAN+HYDROCHLOROTHIAZIDE (HYDROCHLOROTHIAZIDE, LOSARTAN POTASSIUM) [Concomitant]
  11. AMILORIDE (AMILORIDE) TABLET [Concomitant]

REACTIONS (4)
  - BEDRIDDEN [None]
  - BOWEL MOVEMENT IRREGULARITY [None]
  - HAEMODIALYSIS [None]
  - RHABDOMYOLYSIS [None]
